FAERS Safety Report 11840971 (Version 1)
Quarter: 2015Q4

REPORT INFORMATION
  Report Type: Spontaneous
  Country: IL (occurrence: IL)
  Receive Date: 20151216
  Receipt Date: 20151216
  Transmission Date: 20160305
  Serious: Yes (Hospitalization, Other)
  Sender: FDA-Public Use
  Company Number: IL-TEVA-600514ISR

PATIENT
  Age: 84 Year
  Sex: Female

DRUGS (11)
  1. AERIUS [Concomitant]
     Active Substance: DESLORATADINE
     Route: 048
  2. CARDILOC 2.5MG [Concomitant]
     Dosage: 1.25 MILLIGRAM DAILY;
     Route: 048
  3. PLAVIX [Concomitant]
     Active Substance: CLOPIDOGREL BISULFATE
     Route: 048
  4. FUSID 40MG [Suspect]
     Active Substance: FUROSEMIDE
     Indication: PERIPHERAL SWELLING
     Dosage: 20 MILLIGRAM DAILY; HALF A TABLET
     Route: 048
     Dates: start: 201509, end: 201509
  5. DIOVAN 80MG [Concomitant]
     Dosage: 80 MILLIGRAM DAILY;
     Route: 048
  6. LIPITOR [Concomitant]
     Active Substance: ATORVASTATIN CALCIUM
     Route: 048
  7. ELTROXIN 50MCG [Concomitant]
     Dosage: 50 MICROGRAM DAILY;
     Route: 048
  8. SYMBICORT TURBHULARER 106/4.5 MCG/DOSE [Concomitant]
     Route: 048
  9. LEVETIRACETAM 500MG [Suspect]
     Active Substance: LEVETIRACETAM
     Indication: EPILEPSY
     Dosage: 500 MILLIGRAM DAILY;
     Route: 048
  10. LANTON 30MG [Concomitant]
     Route: 048
  11. ZODORM [Concomitant]
     Route: 048

REACTIONS (10)
  - Nausea [Recovering/Resolving]
  - Back pain [Recovering/Resolving]
  - Jaundice [Recovering/Resolving]
  - Pancreatitis [Recovering/Resolving]
  - Chills [Recovering/Resolving]
  - Cholangitis [Unknown]
  - Abdominal pain [Recovering/Resolving]
  - Pyrexia [Recovering/Resolving]
  - Fatigue [Unknown]
  - Asthenia [Unknown]

NARRATIVE: CASE EVENT DATE: 2015
